FAERS Safety Report 11080682 (Version 1)
Quarter: 2015Q2

REPORT INFORMATION
  Report Type: Spontaneous
  Country: US (occurrence: None)
  Receive Date: 20150430
  Receipt Date: 20150430
  Transmission Date: 20150821
  Serious: No
  Sender: FDA-Public Use
  Company Number: None

PATIENT
  Age: 28 Year
  Sex: Female
  Weight: 56.7 kg

DRUGS (12)
  1. BOTOX [Suspect]
     Active Substance: ONABOTULINUMTOXINA
     Indication: PARALYSIS
     Dosage: ONE TIME INJECTION, ONE TIME, DOCTOR/SURGEON INJECTION
     Dates: start: 20141230, end: 20141230
  2. PERCOCET [Concomitant]
     Active Substance: ACETAMINOPHEN\OXYCODONE HYDROCHLORIDE
  3. VITAMIN D3 [Concomitant]
     Active Substance: CHOLECALCIFEROL
  4. ZANTAC [Concomitant]
     Active Substance: RANITIDINE HYDROCHLORIDE
  5. ALLEGRA [Concomitant]
     Active Substance: FEXOFENADINE HYDROCHLORIDE
  6. PROTONIX [Concomitant]
     Active Substance: PANTOPRAZOLE SODIUM
  7. CYMBALTA [Concomitant]
     Active Substance: DULOXETINE HYDROCHLORIDE
  8. BOTOX [Suspect]
     Active Substance: ONABOTULINUMTOXINA
     Indication: GASTROINTESTINAL DISORDER
     Dosage: ONE TIME INJECTION, ONE TIME, DOCTOR/SURGEON INJECTION
     Dates: start: 20141230, end: 20141230
  9. ATENOLOL. [Concomitant]
     Active Substance: ATENOLOL
  10. VITAMIN B12 [Concomitant]
     Active Substance: CYANOCOBALAMIN
  11. GASTROCHROM [Concomitant]
  12. SINGULAIR [Concomitant]
     Active Substance: MONTELUKAST SODIUM

REACTIONS (3)
  - Postural orthostatic tachycardia syndrome [None]
  - Pain [None]
  - Mast cell activation syndrome [None]

NARRATIVE: CASE EVENT DATE: 20141230
